FAERS Safety Report 23178986 (Version 1)
Quarter: 2023Q4

REPORT INFORMATION
  Report Type: Spontaneous
  Country: CA (occurrence: CA)
  Receive Date: 20231113
  Receipt Date: 20231113
  Transmission Date: 20240110
  Serious: Yes (Hospitalization, Disabling)
  Sender: FDA-Public Use
  Company Number: CA-PFIZER INC-202300359208

PATIENT
  Age: 15 Year
  Sex: Female
  Weight: 48 kg

DRUGS (10)
  1. FLUCONAZOLE [Interacting]
     Active Substance: FLUCONAZOLE
     Indication: Onychomycosis
     Dosage: UNK
     Route: 048
  2. FLUCONAZOLE [Interacting]
     Active Substance: FLUCONAZOLE
     Indication: Fungal infection
  3. CLOBAZAM [Interacting]
     Active Substance: CLOBAZAM
     Indication: Seizure
     Dosage: 20.0 MG, 2 EVERY 1 DAYS
  4. PHENOBARBITAL [Interacting]
     Active Substance: PHENOBARBITAL
     Indication: Seizure
     Dosage: 30 MG, 1 EVERY 1 DAYS
  5. PHENOBARBITAL [Interacting]
     Active Substance: PHENOBARBITAL
     Indication: Cerebrovascular accident
     Dosage: 45 MG, 1 EVERY 1 DAYS
  6. TOPAMAX [Interacting]
     Active Substance: TOPIRAMATE
     Indication: Seizure
     Dosage: 150.0 MG, 2 EVERY 1 DAYS
  7. CHOLECALCIFEROL [Concomitant]
     Active Substance: CHOLECALCIFEROL
  8. FLUTICASONE [Concomitant]
     Active Substance: FLUTICASONE
  9. LANSOPRAZOLE [Concomitant]
     Active Substance: LANSOPRAZOLE
  10. TIZANIDINE [Concomitant]
     Active Substance: TIZANIDINE

REACTIONS (6)
  - Altered state of consciousness [Recovered/Resolved]
  - Atrioventricular block [Recovered/Resolved]
  - Bradycardia [Recovered/Resolved]
  - Bradypnoea [Recovered/Resolved]
  - Drug interaction [Recovered/Resolved]
  - Therapy interrupted [Recovered/Resolved]
